FAERS Safety Report 5482442-9 (Version None)
Quarter: 2007Q4

REPORT INFORMATION
  Report Type: 
  Country: None (occurrence: None)
  Receive Date: 20071011
  Receipt Date: 20071010
  Transmission Date: 20080405
  Serious: Yes (Hospitalization)
  Sender: FDA-Public Use
  Company Number: A0683006A

PATIENT

DRUGS (1)
  1. ALLI [Suspect]
     Route: 048
     Dates: start: 20070914

REACTIONS (3)
  - DIVERTICULITIS [None]
  - FLATULENCE [None]
  - MALAISE [None]
